FAERS Safety Report 4540354-9 (Version None)
Quarter: 2004Q4

REPORT INFORMATION
  Report Type: 
  Country: None (occurrence: None)
  Receive Date: 20041223
  Receipt Date: 20041214
  Transmission Date: 20050328
  Serious: Yes (Other)
  Sender: FDA-Public Use
  Company Number: 2004100049

PATIENT
  Age: 45 Year
  Sex: Male

DRUGS (5)
  1. NORVASC [Suspect]
     Indication: ILL-DEFINED DISORDER
     Dosage: 10 MG, ORAL
     Route: 048
  2. PROPRANOLOL HYDROCHLORIDE (PROPRANOLOL HYDROCHLORIDE) [Suspect]
     Indication: ILL-DEFINED DISORDER
     Dosage: 80 MG
  3. PRAVASTATIN SODIUM [Suspect]
     Indication: ILL-DEFINED DISORDER
     Dosage: 70 MG, ORAL
     Route: 048
  4. DISOPYRAMIDE [Suspect]
     Indication: ILL-DEFINED DISORDER
     Dosage: 300 MG
  5. ETIZOLAM (ETIZOLAM) [Suspect]
     Indication: ILL-DEFINED DISORDER
     Dosage: 4 MG, ORAL
     Route: 048

REACTIONS (3)
  - MULTIPLE DRUG OVERDOSE INTENTIONAL [None]
  - SELF-MEDICATION [None]
  - SUICIDE ATTEMPT [None]
